FAERS Safety Report 8577782-0 (Version None)
Quarter: 2012Q3

REPORT INFORMATION
  Report Type: 
  Country: None (occurrence: None)
  Receive Date: 20120808
  Receipt Date: 20120731
  Transmission Date: 20120928
  Serious: Yes (Hospitalization)
  Sender: FDA-Public Use
  Company Number: US-BIOGENIDEC-2012BI028364

PATIENT
  Age: 63 Year
  Sex: Female

DRUGS (2)
  1. AVONEX [Suspect]
     Route: 030
     Dates: start: 20030801
  2. AVONEX [Suspect]
     Indication: MULTIPLE SCLEROSIS
     Route: 030
     Dates: start: 19980403, end: 20030801

REACTIONS (7)
  - POSTOPERATIVE WOUND COMPLICATION [None]
  - MENISCUS LESION [None]
  - INTERVERTEBRAL DISC PROTRUSION [None]
  - JOINT LOCK [None]
  - BACK PAIN [None]
  - SPINAL OSTEOARTHRITIS [None]
  - WOUND DEHISCENCE [None]
